FAERS Safety Report 19742328 (Version 1)
Quarter: 2021Q3

REPORT INFORMATION
  Report Type: Spontaneous
  Country: NL (occurrence: NL)
  Receive Date: 20210824
  Receipt Date: 20210824
  Transmission Date: 20211014
  Serious: Yes (Hospitalization)
  Sender: FDA-Public Use
  Company Number: NL-MYLANLABS-2021M1054403

PATIENT
  Sex: Female
  Weight: 71.3 kg

DRUGS (4)
  1. VORTIOXETINE. [Concomitant]
     Active Substance: VORTIOXETINE
     Dosage: UNK (TABLET, 15 MG)
  2. QUETIAPINE. [Suspect]
     Active Substance: QUETIAPINE
     Indication: INSOMNIA
     Dosage: 12.5 MILLIGRAM, QD (1 DD1)
     Dates: start: 202101
  3. OMEPRAZOL                          /00661201/ [Concomitant]
     Active Substance: OMEPRAZOLE
     Dosage: UNK MAAGSAPRESISTENTE TABLET, 40 MG
  4. FERROFUMARAAT [Concomitant]
     Active Substance: FERROUS FUMARATE
     Dosage: UNK  200 MG

REACTIONS (1)
  - Hypersomnia [Recovered/Resolved]
